FAERS Safety Report 25523839 (Version 1)
Quarter: 2025Q3

REPORT INFORMATION
  Report Type: Spontaneous
  Country: US (occurrence: US)
  Receive Date: 20250707
  Receipt Date: 20250707
  Transmission Date: 20251020
  Serious: No
  Sender: ACCORD
  Company Number: US-Accord-455152

PATIENT
  Sex: Male

DRUGS (1)
  1. LEUPROLIDE [Suspect]
     Active Substance: LEUPROLIDE
     Indication: Product used for unknown indication

REACTIONS (2)
  - Injection site haemorrhage [Recovered/Resolved]
  - Injection site bruising [Unknown]
